FAERS Safety Report 7122234-8 (Version None)
Quarter: 2010Q4

REPORT INFORMATION
  Report Type: 
  Country: None (occurrence: None)
  Receive Date: 20101124
  Receipt Date: 20101119
  Transmission Date: 20110411
  Serious: Yes (Hospitalization, Other)
  Sender: FDA-Public Use
  Company Number: US-US-EMD SERONO, INC.-230456M09USA

PATIENT
  Sex: Female
  Weight: 84 kg

DRUGS (4)
  1. REBIF [Suspect]
     Indication: MULTIPLE SCLEROSIS
     Route: 058
     Dates: start: 20050605, end: 20090701
  2. REBIF [Suspect]
     Route: 058
     Dates: start: 20090901, end: 20091101
  3. REBIF [Suspect]
     Dates: end: 20100101
  4. VITAMINS [Concomitant]

REACTIONS (8)
  - ANGER [None]
  - DEPRESSIVE SYMPTOM [None]
  - EMOTIONAL DISORDER [None]
  - MIGRAINE [None]
  - MULTIPLE SCLEROSIS RELAPSE [None]
  - PULMONARY EMBOLISM [None]
  - SUICIDAL IDEATION [None]
  - VERBAL ABUSE [None]
